FAERS Safety Report 8218027-0 (Version None)
Quarter: 2012Q1

REPORT INFORMATION
  Report Type: 
  Country: None (occurrence: None)
  Receive Date: 20120319
  Receipt Date: 20120314
  Transmission Date: 20120608
  Serious: No
  Sender: FDA-Public Use
  Company Number: US-PFIZER INC-2012067713

PATIENT
  Sex: Female
  Weight: 79.819 kg

DRUGS (6)
  1. CELEBREX [Suspect]
     Indication: SPONDYLITIS
  2. CELEBREX [Suspect]
     Indication: BACK PAIN
     Dosage: 200 MG, 1X/DAY
     Route: 048
     Dates: start: 20120307, end: 20120301
  3. XANAX [Concomitant]
     Indication: ANXIETY
  4. HYDROCHLOROTHIAZIDE [Concomitant]
     Dosage: 25 MG, 1X/DAY
  5. XANAX [Concomitant]
     Indication: TREMOR
     Dosage: UNK
  6. CELEBREX [Suspect]
     Indication: OSTEOARTHRITIS

REACTIONS (1)
  - PAIN [None]
